FAERS Safety Report 5655804-4 (Version None)
Quarter: 2008Q1

REPORT INFORMATION
  Report Type: 
  Country: None (occurrence: None)
  Receive Date: 20080307
  Receipt Date: 20080221
  Transmission Date: 20080703
  Serious: Yes (Hospitalization)
  Sender: FDA-Public Use
  Company Number: FR-GENENTECH-256809

PATIENT
  Sex: Female

DRUGS (7)
  1. AVASTIN [Suspect]
     Indication: RECTAL CANCER
     Dosage: UNK, UNK
     Route: 042
     Dates: start: 20070601
  2. FLUINDIONE [Suspect]
     Indication: EMBOLISM
     Route: 048
     Dates: start: 20070601
  3. PENTOXIFYLLINE [Suspect]
     Indication: EMBOLISM
     Route: 048
     Dates: start: 20070601
  4. FLUOROURACIL [Suspect]
     Indication: RECTAL CANCER
     Dosage: UNK, UNK
     Route: 042
     Dates: start: 20070601
  5. CAMPTO [Suspect]
     Indication: RECTAL CANCER
     Route: 042
     Dates: start: 20070601
  6. FOLINIC ACID [Concomitant]
     Indication: DRUG USE FOR UNKNOWN INDICATION
     Dates: start: 20070601
  7. ANTIVITAMIN K [Concomitant]

REACTIONS (1)
  - HYPOKALAEMIA [None]
